FAERS Safety Report 4685730-9 (Version None)
Quarter: 2005Q2

REPORT INFORMATION
  Report Type: 
  Country: None (occurrence: None)
  Receive Date: 20050608
  Receipt Date: 20050524
  Transmission Date: 20051028
  Serious: Yes (Hospitalization, Other)
  Sender: FDA-Public Use
  Company Number: HQWYE084613AUG03

PATIENT
  Age: 51 Year
  Sex: Female
  Weight: 77.18 kg

DRUGS (6)
  1. PREMPRO [Suspect]
     Indication: MENOPAUSAL SYMPTOMS
     Dosage: 0.625MG/5MG DAILY, ORAL
     Route: 048
     Dates: start: 20000101, end: 20020101
  2. PREMARIN [Suspect]
     Dosage: ORAL
     Route: 048
     Dates: start: 20000101, end: 20020101
  3. VIOXX [Concomitant]
  4. CELEBREX [Concomitant]
  5. PAXIL [Concomitant]
  6. AMBIEN (ZOOPIDEM TARTRATE) [Concomitant]

REACTIONS (12)
  - BRAIN OEDEMA [None]
  - CEREBRAL HAEMORRHAGE [None]
  - CEREBRAL THROMBOSIS [None]
  - CEREBROVASCULAR ACCIDENT [None]
  - CONVULSION [None]
  - CSF PROTEIN INCREASED [None]
  - CSF WHITE BLOOD CELL COUNT POSITIVE [None]
  - GLIOMA [None]
  - HEADACHE [None]
  - NEOPLASM [None]
  - POLYTRAUMATISM [None]
  - TAENIASIS [None]
